FAERS Safety Report 7179614-4 (Version None)
Quarter: 2010Q4

REPORT INFORMATION
  Report Type: 
  Country: None (occurrence: None)
  Receive Date: 20101209
  Receipt Date: 20101126
  Transmission Date: 20110411
  Serious: Yes (Other)
  Sender: FDA-Public Use
  Company Number: 011971

PATIENT
  Age: 73 Year
  Sex: Female

DRUGS (2)
  1. PLETAL [Suspect]
     Indication: ARTERIOSCLEROSIS OBLITERANS
     Dosage: 50 MG, BID, ORAL
     Route: 048
     Dates: start: 20090519, end: 20091130
  2. ANTIHYPERTENSIVES [Concomitant]

REACTIONS (1)
  - VASODILATION PROCEDURE [None]
